FAERS Safety Report 18541470 (Version 2)
Quarter: 2020Q4

REPORT INFORMATION
  Report Type: Spontaneous
  Country: GB (occurrence: US)
  Receive Date: 20201124
  Receipt Date: 20201215
  Transmission Date: 20210114
  Serious: Yes (Other)
  Sender: FDA-Public Use
  Company Number: GB-TEVA-2020-GB-1848977

PATIENT
  Sex: Male

DRUGS (1)
  1. CISPLATIN. [Suspect]
     Active Substance: CISPLATIN
     Indication: LUNG NEOPLASM MALIGNANT
     Dosage: 8 HOURS INFUSION
     Route: 050

REACTIONS (6)
  - Fatigue [Unknown]
  - Taste disorder [Unknown]
  - Amnesia [Unknown]
  - Nausea [Unknown]
  - Hordeolum [Unknown]
  - Bipolar disorder [Unknown]
